FAERS Safety Report 25878313 (Version 1)
Quarter: 2025Q4

REPORT INFORMATION
  Report Type: Spontaneous
  Country: JP (occurrence: JP)
  Receive Date: 20251003
  Receipt Date: 20251003
  Transmission Date: 20260117
  Serious: Yes (Other)
  Sender: PFIZER
  Company Number: JP-ONO-2024JP019625

PATIENT
  Age: 45 Year
  Sex: Male

DRUGS (8)
  1. BRAFTOVI [Suspect]
     Active Substance: ENCORAFENIB
     Indication: Thyroid cancer
     Dosage: UNK
     Route: 048
     Dates: start: 202408
  2. BRAFTOVI [Suspect]
     Active Substance: ENCORAFENIB
     Dosage: UNK
     Route: 048
     Dates: start: 20240902, end: 20241023
  3. BRAFTOVI [Suspect]
     Active Substance: ENCORAFENIB
     Dosage: 1-LEVEL DOSE REDUCTION
     Route: 048
     Dates: start: 20241106
  4. BRAFTOVI [Suspect]
     Active Substance: ENCORAFENIB
     Dosage: 2-LEVEL REDUCTION (DURATION OF USE: 12 MONTHS)
     Route: 048
  5. MEKTOVI [Suspect]
     Active Substance: BINIMETINIB
     Indication: Thyroid cancer
     Dosage: UNK
     Route: 048
     Dates: start: 202408
  6. MEKTOVI [Suspect]
     Active Substance: BINIMETINIB
     Dosage: UNK
     Route: 048
     Dates: start: 20240902, end: 20241023
  7. MEKTOVI [Suspect]
     Active Substance: BINIMETINIB
     Dosage: 1-LEVEL DOSE REDUCTION
     Route: 048
     Dates: start: 20241106
  8. MEKTOVI [Suspect]
     Active Substance: BINIMETINIB
     Dosage: 2-LEVEL REDUCTION (DURATION OF USE: 12 MONTHS)
     Route: 048

REACTIONS (4)
  - Liver disorder [Recovering/Resolving]
  - Malaise [Unknown]
  - Hepatic function abnormal [Unknown]
  - Thyroglobulin increased [Not Recovered/Not Resolved]

NARRATIVE: CASE EVENT DATE: 20240920
